FAERS Safety Report 8621559-4 (Version None)
Quarter: 2012Q3

REPORT INFORMATION
  Report Type: 
  Country: None (occurrence: None)
  Receive Date: 20120825
  Receipt Date: 20120813
  Transmission Date: 20120928
  Serious: Yes (Other)
  Sender: FDA-Public Use
  Company Number: GB-009507513-1208GBR006692

PATIENT

DRUGS (5)
  1. LERCANIDIPINE [Concomitant]
  2. ROCURONIUM BROMIDE [Concomitant]
     Indication: NEUROMUSCULAR BLOCKADE REVERSAL
  3. PERINDOPRIL ERBUMINE [Concomitant]
  4. SUGAMMADEX SODIUM [Suspect]
     Indication: NEUROMUSCULAR BLOCKADE REVERSAL
     Dosage: 200 MG, UNK
     Route: 042
  5. LABETALOL HYDROCHLORIDE [Concomitant]

REACTIONS (1)
  - BRADYCARDIA [None]
